FAERS Safety Report 21198385 (Version 3)
Quarter: 2022Q3

REPORT INFORMATION
  Report Type: Spontaneous
  Country: US (occurrence: US)
  Receive Date: 20220811
  Receipt Date: 20220903
  Transmission Date: 20221027
  Serious: Yes (Hospitalization, Other)
  Sender: FDA-Public Use
  Company Number: US-MLMSERVICE-20220725-3697345-1

PATIENT
  Age: 7 Decade
  Sex: Female

DRUGS (6)
  1. LEVOFLOXACIN [Suspect]
     Active Substance: LEVOFLOXACIN
     Indication: Product used for unknown indication
     Dosage: UNK
     Route: 048
  2. PREDNISONE [Suspect]
     Active Substance: PREDNISONE
     Indication: Myositis
     Dosage: UNK (DOSE REDUCED )
     Route: 065
  3. PREDNISONE [Suspect]
     Active Substance: PREDNISONE
     Dosage: 40 MILLIGRAM, ONCE A DAY (EXTENDED DOSE)
     Route: 065
  4. SUCRALFATE [Concomitant]
     Active Substance: SUCRALFATE
     Indication: Product used for unknown indication
     Dosage: UNK
     Route: 065
  5. ONDANSETRON [Concomitant]
     Active Substance: ONDANSETRON
     Indication: Product used for unknown indication
     Dosage: UNK
     Route: 065
  6. IVERMECTIN [Concomitant]
     Active Substance: IVERMECTIN
     Indication: Product used for unknown indication
     Dosage: 200 MILLIGRAM/KILOGRAM, ONCE A DAY FOR 2 WEEKS
     Route: 065

REACTIONS (5)
  - Escherichia bacteraemia [Recovering/Resolving]
  - Oesophageal candidiasis [Recovering/Resolving]
  - Pseudomonas infection [Recovering/Resolving]
  - Strongyloidiasis [Recovering/Resolving]
  - Disseminated strongyloidiasis [Recovering/Resolving]
